FAERS Safety Report 13060739 (Version 5)
Quarter: 2017Q2

REPORT INFORMATION
  Report Type: Spontaneous
  Country: US (occurrence: US)
  Receive Date: 20161225
  Receipt Date: 20170420
  Transmission Date: 20170830
  Serious: No
  Sender: FDA-Public Use
  Company Number: US-ASTRAZENECA-2016SF29549

PATIENT
  Sex: Female
  Weight: 136.1 kg

DRUGS (4)
  1. NOVOLOG [Concomitant]
     Active Substance: INSULIN ASPART
     Dosage: 9 UNITS IN THE MORNING, 14 UNITS AT LUNCH, AND 19 UNITS AT SUPPER
  2. LANTUS [Concomitant]
     Active Substance: INSULIN GLARGINE
     Dosage: 20 UNITS IN THE MORNING AND 76 UNITS IN THE EVENING
  3. BYDUREON [Suspect]
     Active Substance: EXENATIDE
     Indication: TYPE 2 DIABETES MELLITUS
     Route: 058
     Dates: start: 20160530
  4. BYDUREON [Suspect]
     Active Substance: EXENATIDE
     Indication: TYPE 2 DIABETES MELLITUS
     Route: 058
     Dates: start: 201601, end: 201604

REACTIONS (6)
  - Ill-defined disorder [Unknown]
  - Haemorrhage [Unknown]
  - Laryngeal discomfort [Unknown]
  - Underdose [Unknown]
  - Intentional product use issue [Unknown]
  - Device issue [Unknown]
